FAERS Safety Report 5131567-6 (Version None)
Quarter: 2006Q4

REPORT INFORMATION
  Report Type: 
  Country: None (occurrence: None)
  Receive Date: 20061016
  Receipt Date: 20061002
  Transmission Date: 20070319
  Serious: Yes (Other)
  Sender: FDA-Public Use
  Company Number: 2006122437

PATIENT
  Age: 44 Year
  Sex: Female

DRUGS (3)
  1. PREDNISOLONE [Suspect]
     Indication: ANAEMIA HAEMOLYTIC AUTOIMMUNE
     Dosage: (30 MG)
  2. METHYLPREDNISOLONE [Suspect]
     Indication: ANAEMIA HAEMOLYTIC AUTOIMMUNE
     Dosage: INTRAVENOUS
     Route: 042
  3. IMMUNOGLOBULINS (IMMUNOGLOBULINS) [Concomitant]

REACTIONS (7)
  - ABSCESS BACTERIAL [None]
  - BRAIN ABSCESS [None]
  - DISORIENTATION [None]
  - FACIAL PALSY [None]
  - NOCARDIOSIS [None]
  - PLEURAL EFFUSION [None]
  - UPPER MOTOR NEURONE LESION [None]
